FAERS Safety Report 23843263 (Version 3)
Quarter: 2025Q1

REPORT INFORMATION
  Report Type: Spontaneous
  Country: CA (occurrence: CA)
  Receive Date: 20240510
  Receipt Date: 20250121
  Transmission Date: 20250409
  Serious: No
  Sender: VERTEX
  Company Number: US-VERTEX PHARMACEUTICALS-2024-007699

PATIENT
  Age: 30 Year
  Sex: Female

DRUGS (1)
  1. TRIKAFTA [Suspect]
     Active Substance: ELEXACAFTOR\IVACAFTOR\TEZACAFTOR
     Indication: Cystic fibrosis
     Dosage: SWITCHED DOSE ONE BLUE TABLETS IN AM AND TWO ORANGE TABLET IN PM
     Route: 048

REACTIONS (7)
  - Fat intolerance [Unknown]
  - Apathy [Not Recovered/Not Resolved]
  - Thirst [Not Recovered/Not Resolved]
  - Fatigue [Not Recovered/Not Resolved]
  - Somnolence [Not Recovered/Not Resolved]
  - Postprandial hypoglycaemia [Not Recovered/Not Resolved]
  - Dyspepsia [Unknown]
